FAERS Safety Report 10032405 (Version 2)
Quarter: 2014Q1

REPORT INFORMATION
  Report Type: Spontaneous
  Country: CA (occurrence: None)
  Receive Date: 20140320
  Receipt Date: 20140326
  Transmission Date: 20141002
  Serious: Yes (Death, Other)
  Sender: FDA-Public Use
  Company Number: AUR-APL-2014-03061

PATIENT
  Age: 7 Year
  Sex: Female

DRUGS (2)
  1. CEFPROZIL [Suspect]
     Indication: ANTIBIOTIC PROPHYLAXIS
  2. DIMENHYDRINATE (DIMENHYDRINATE) [Concomitant]
     Indication: IMMUNISATION

REACTIONS (12)
  - Headache [None]
  - Vomiting [None]
  - Fatigue [None]
  - Confusional state [None]
  - Purpura [None]
  - Sepsis [None]
  - Meningitis [None]
  - Respiratory failure [None]
  - Brain herniation [None]
  - Streptococcal infection [None]
  - Pathogen resistance [None]
  - Neutropenia [None]
